FAERS Safety Report 26135874 (Version 1)
Quarter: 2025Q4

REPORT INFORMATION
  Report Type: Report from Study
  Country: CA (occurrence: CA)
  Receive Date: 20251209
  Receipt Date: 20251209
  Transmission Date: 20260119
  Serious: Yes (Other)
  Sender: ALEXION PHARMACEUTICALS
  Company Number: CA-AstraZeneca-CH-01007483A

PATIENT
  Sex: Female

DRUGS (3)
  1. OSIMERTINIB [Suspect]
     Active Substance: OSIMERTINIB
     Indication: Non-small cell lung cancer
     Dosage: 80 MILLIGRAM, QD
     Dates: start: 20251118
  2. CEPHALEXIN [Concomitant]
     Active Substance: CEPHALEXIN
     Dosage: UNK
     Route: 065
  3. HISTAMINE [Concomitant]
     Active Substance: HISTAMINE
     Dosage: UNK
     Route: 065

REACTIONS (4)
  - Sialoadenitis [Unknown]
  - Rash [Unknown]
  - Pruritus [Unknown]
  - Stress [Unknown]
